FAERS Safety Report 14229209 (Version 2)
Quarter: 2017Q4

REPORT INFORMATION
  Report Type: Spontaneous
  Country: CZ (occurrence: CZ)
  Receive Date: 20171128
  Receipt Date: 20171201
  Transmission Date: 20180321
  Serious: Yes (Other)
  Sender: FDA-Public Use
  Company Number: CZ-AMGEN-CZESP2017176046

PATIENT
  Age: 36 Year
  Sex: Female

DRUGS (8)
  1. OXALIPLATIN. [Concomitant]
     Active Substance: OXALIPLATIN
     Indication: COLORECTAL CANCER METASTATIC
     Dosage: UNK UNK, CYCLICAL
     Dates: start: 201503
  2. FOLINIC ACID [Concomitant]
     Active Substance: LEUCOVORIN
     Indication: COLORECTAL CANCER METASTATIC
     Dosage: UNK UNK, CYCLICAL
     Dates: start: 201503
  3. VECTIBIX [Suspect]
     Active Substance: PANITUMUMAB
     Dosage: UNK UNK, CYCLICAL
     Route: 065
     Dates: start: 201509, end: 201608
  4. VECTIBIX [Suspect]
     Active Substance: PANITUMUMAB
     Indication: COLORECTAL CANCER METASTATIC
     Dosage: UNK UNK, CYCLICAL
     Route: 065
     Dates: start: 201503
  5. 5 FU [Concomitant]
     Active Substance: FLUOROURACIL
     Indication: COLORECTAL CANCER METASTATIC
     Dosage: UNK UNK, CYCLICAL
     Dates: start: 201503
  6. 5 FU [Concomitant]
     Active Substance: FLUOROURACIL
     Dosage: UNK UNK, CYCLICAL (DOSAGE REDUCED BY 75%)
     Dates: start: 2015
  7. FOLINIC ACID [Concomitant]
     Active Substance: LEUCOVORIN
     Dosage: UNK UNK, CYCLICAL (DOSAGE REDUCED BY 75%)
     Dates: start: 2015
  8. OXALIPLATIN. [Concomitant]
     Active Substance: OXALIPLATIN
     Dosage: UNK UNK, CYCLICAL (DOSAGE REDUCED BY 75%)
     Dates: start: 2015

REACTIONS (5)
  - Adrenal gland cancer metastatic [Unknown]
  - Disease progression [Unknown]
  - Diarrhoea [Unknown]
  - Skin toxicity [Unknown]
  - Neutropenia [Unknown]

NARRATIVE: CASE EVENT DATE: 2015
